FAERS Safety Report 15468969 (Version 4)
Quarter: 2018Q4

REPORT INFORMATION
  Report Type: Spontaneous
  Country: US (occurrence: US)
  Receive Date: 20181005
  Receipt Date: 20181121
  Transmission Date: 20190205
  Serious: Yes (Death, Hospitalization, Other)
  Sender: FDA-Public Use
  Company Number: US-TAIHO ONCOLOGY  INC-EU-2018-01573

PATIENT
  Age: 45 Year
  Sex: Male
  Weight: 80.77 kg

DRUGS (6)
  1. POTASSIUM CHLORIDE. [Concomitant]
     Active Substance: POTASSIUM CHLORIDE
     Dosage: NI
  2. LONSURF [Suspect]
     Active Substance: TIPIRACIL HYDROCHLORIDE\TRIFLURIDINE
     Indication: COLON CANCER
     Dosage: CYCLE 7
     Route: 048
     Dates: start: 20180101, end: 2018
  3. ZOFRAN [Concomitant]
     Active Substance: ONDANSETRON HYDROCHLORIDE
     Dosage: NI
  4. LOMOTIL [Concomitant]
     Active Substance: ATROPINE SULFATE\DIPHENOXYLATE HYDROCHLORIDE
     Dosage: NI
  5. POTASSIUM [Concomitant]
     Active Substance: POTASSIUM
     Dosage: NI
  6. ATIVAN [Concomitant]
     Active Substance: LORAZEPAM
     Dosage: NI

REACTIONS (5)
  - Death [Fatal]
  - Blood bilirubin increased [Recovering/Resolving]
  - White blood cell count decreased [Unknown]
  - Neutropenia [Unknown]
  - Complication associated with device [Recovering/Resolving]

NARRATIVE: CASE EVENT DATE: 2018
